FAERS Safety Report 4344977-1 (Version None)
Quarter: 2004Q2

REPORT INFORMATION
  Report Type: 
  Country: None (occurrence: None)
  Receive Date: 20040421
  Receipt Date: 20040421
  Transmission Date: 20050107
  Serious: Yes (Hospitalization, Other)
  Sender: FDA-Public Use
  Company Number: None

PATIENT
  Age: 22 Year
  Sex: Male
  Weight: 83.9154 kg

DRUGS (2)
  1. COGENTIN [Suspect]
     Indication: SCHIZOPHRENIA, PARANOID TYPE
  2. DEPAKOTE [Suspect]

REACTIONS (1)
  - EYE DISORDER [None]
